FAERS Safety Report 17198331 (Version 4)
Quarter: 2024Q2

REPORT INFORMATION
  Report Type: Spontaneous
  Country: IT (occurrence: IT)
  Receive Date: 20191225
  Receipt Date: 20240401
  Transmission Date: 20240715
  Serious: Yes (Other)
  Sender: FDA-Public Use
  Company Number: IT-OTSUKA-2015_001425

PATIENT
  Age: 40 Year
  Sex: Male

DRUGS (24)
  1. ARIPIPRAZOLE [Suspect]
     Active Substance: ARIPIPRAZOLE
     Indication: Bipolar I disorder
     Dosage: UNK (LOW DOSE)
     Route: 065
  2. ARIPIPRAZOLE [Suspect]
     Active Substance: ARIPIPRAZOLE
     Indication: Hypomania
     Dosage: 15 MILLIGRAM
     Route: 048
  3. ARIPIPRAZOLE [Suspect]
     Active Substance: ARIPIPRAZOLE
     Dosage: 5 MILLIGRAM, ONCE A DAY
     Route: 065
     Dates: start: 201709, end: 2017
  4. ARIPIPRAZOLE [Suspect]
     Active Substance: ARIPIPRAZOLE
     Dosage: 20 MILLIGRAM, ONCE A DAY
     Route: 065
     Dates: start: 201805, end: 2018
  5. DELORAZEPAM [Suspect]
     Active Substance: DELORAZEPAM
     Indication: Bipolar I disorder
     Dosage: UNK
     Route: 065
  6. DULOXETINE [Suspect]
     Active Substance: DULOXETINE
     Indication: Bipolar I disorder
     Dosage: UNK
     Route: 065
  7. ESCITALOPRAM [Suspect]
     Active Substance: ESCITALOPRAM OXALATE
     Indication: Bipolar I disorder
     Dosage: UNK
     Route: 065
  8. LORAZEPAM [Suspect]
     Active Substance: LORAZEPAM
     Indication: Bipolar I disorder
     Dosage: UNK
     Route: 065
  9. LAMOTRIGINE [Suspect]
     Active Substance: LAMOTRIGINE
     Indication: Bipolar I disorder
     Dosage: UNK
     Route: 065
  10. OLANZAPINE [Suspect]
     Active Substance: OLANZAPINE
     Indication: Bipolar I disorder
     Dosage: UNK
     Route: 065
  11. VALPROATE SODIUM [Suspect]
     Active Substance: VALPROATE SODIUM
     Indication: Bipolar I disorder
     Dosage: 1500 MILLIGRAM, ONCE A DAY
     Route: 065
     Dates: start: 201709
  12. QUETIAPINE [Suspect]
     Active Substance: QUETIAPINE
     Indication: Hypomania
     Dosage: 300 MILLIGRAM, ONCE A DAY
     Route: 065
     Dates: start: 201709
  13. QUETIAPINE [Suspect]
     Active Substance: QUETIAPINE
     Indication: Bipolar disorder
  14. VENLAFAXINE [Suspect]
     Active Substance: VENLAFAXINE HYDROCHLORIDE
     Indication: Bipolar I disorder
     Dosage: UNK
     Route: 065
  15. ABILIFY MAINTENA [Suspect]
     Active Substance: ARIPIPRAZOLE
     Indication: Schizophrenia
     Dosage: 400 MILLIGRAM, MONTHLY
     Route: 030
     Dates: start: 20150415
  16. ABILIFY MAINTENA [Suspect]
     Active Substance: ARIPIPRAZOLE
     Dosage: 400 MG, MONTHLY
     Route: 030
     Dates: start: 201505
  17. AMITRIPTYLINE [Suspect]
     Active Substance: AMITRIPTYLINE
     Indication: Bipolar I disorder
     Dosage: UNK
     Route: 065
  18. ADEMETIONINE [Suspect]
     Active Substance: ADEMETIONINE
     Indication: Bipolar I disorder
     Dosage: UNK
     Route: 065
  19. FLUOXETINE [Suspect]
     Active Substance: FLUOXETINE HYDROCHLORIDE
     Indication: Bipolar I disorder
     Dosage: UNK
     Route: 065
  20. PERPHENAZINE [Suspect]
     Active Substance: PERPHENAZINE
     Indication: Bipolar I disorder
     Dosage: UNK
     Route: 065
  21. VORTIOXETINE [Suspect]
     Active Substance: VORTIOXETINE
     Indication: Bipolar I disorder
     Dosage: UNK
     Route: 065
  22. VALPROATE SODIUM [Concomitant]
     Active Substance: VALPROATE SODIUM
     Indication: Bipolar I disorder
     Dosage: 1500 MILLIGRAM, ONCE A DAY
     Route: 065
     Dates: start: 201709
  23. LITHIUM [Concomitant]
     Active Substance: LITHIUM
     Indication: Bipolar I disorder
     Dosage: UNK
     Route: 065
  24. HALOPERIDOL [Concomitant]
     Active Substance: HALOPERIDOL
     Indication: Bipolar I disorder
     Dosage: UNK
     Route: 065

REACTIONS (6)
  - Gambling disorder [Recovered/Resolved]
  - Abnormal behaviour [Not Recovered/Not Resolved]
  - Antisocial behaviour [Not Recovered/Not Resolved]
  - Underdose [Unknown]
  - Drug ineffective [Unknown]
  - Therapeutic response decreased [Unknown]

NARRATIVE: CASE EVENT DATE: 20150510
